FAERS Safety Report 12556470 (Version 1)
Quarter: 2016Q3

REPORT INFORMATION
  Report Type: Report from Study
  Country: KR (occurrence: KR)
  Receive Date: 20160714
  Receipt Date: 20160714
  Transmission Date: 20161109
  Serious: Yes (Hospitalization)
  Sender: FDA-Public Use
  Company Number: PHHO2013KR019659

PATIENT
  Age: 72 Year
  Sex: Male
  Weight: 53 kg

DRUGS (10)
  1. ULTRACET [Concomitant]
     Active Substance: ACETAMINOPHEN\TRAMADOL HYDROCHLORIDE
     Indication: PAIN
     Dosage: 1 PRN
     Route: 048
     Dates: start: 20130806, end: 20140111
  2. PANTOPRAZOLE [Concomitant]
     Active Substance: PANTOPRAZOLE SODIUM
     Dosage: 20 MG (1 AC)
     Route: 048
     Dates: start: 20140107, end: 20140111
  3. PAZOPANIB [Suspect]
     Active Substance: PAZOPANIB
     Indication: METASTATIC RENAL CELL CARCINOMA
     Dosage: 800 MG, QD
     Route: 048
     Dates: start: 20130723
  4. RHINATHIOL [Concomitant]
     Active Substance: CARBOCYSTEINE
     Indication: DYSPEPSIA
     Dosage: 500 MG, TID
     Route: 048
     Dates: start: 20131210, end: 20131223
  5. MUCOSOL [Concomitant]
     Active Substance: ACETYLCYSTEINE
     Indication: PRODUCTIVE COUGH
     Dosage: 8 BID
     Route: 048
     Dates: start: 20131208, end: 20131210
  6. BROMHEXINE HYDROCHLORIDE [Concomitant]
     Active Substance: BROMHEXINE HYDROCHLORIDE
     Indication: PRODUCTIVE COUGH
     Dosage: 8 MG, BID
     Route: 048
     Dates: start: 20131208, end: 20131210
  7. LEVOTHYROXIN [Concomitant]
     Active Substance: LEVOTHYROXINE
     Indication: HYPERTHYROIDISM
     Dosage: 0.05 QD
     Route: 048
     Dates: start: 20131217, end: 20140111
  8. CARBOCISTEINE [Concomitant]
     Active Substance: CARBOCYSTEINE
     Indication: DYSPEPSIA
     Dosage: 500 MG, TID
     Route: 048
     Dates: start: 20131210, end: 20131223
  9. PANTOPRAZOLE [Concomitant]
     Active Substance: PANTOPRAZOLE SODIUM
     Indication: DYSPEPSIA
     Dosage: 20 MG (1 AC)
     Route: 048
     Dates: start: 20131210, end: 20131223
  10. LEVOTENSION [Concomitant]
     Indication: HYPERTENSION
     Dosage: 2.5 QD
     Route: 048
     Dates: start: 20130720, end: 20140111

REACTIONS (1)
  - Dyspnoea [Recovered/Resolved with Sequelae]

NARRATIVE: CASE EVENT DATE: 20131201
